FAERS Safety Report 9644545 (Version 2)
Quarter: 2013Q4

REPORT INFORMATION
  Report Type: Spontaneous
  Country: IT (occurrence: IT)
  Receive Date: 20131025
  Receipt Date: 20131108
  Transmission Date: 20140711
  Serious: Yes (Hospitalization)
  Sender: FDA-Public Use
  Company Number: IT-ASTRAZENECA-2013SE76697

PATIENT
  Age: 14291 Day
  Sex: Female

DRUGS (6)
  1. SEROQUEL [Suspect]
     Indication: INTENTIONAL SELF-INJURY
     Route: 048
     Dates: start: 20130909, end: 20130909
  2. DIAZEPAM [Suspect]
     Indication: INTENTIONAL SELF-INJURY
     Route: 048
     Dates: start: 20130909, end: 20130909
  3. FELISON [Suspect]
     Indication: INTENTIONAL SELF-INJURY
     Route: 048
     Dates: start: 20130909, end: 20130909
  4. VENLAFAXINE [Concomitant]
  5. TRITTICO [Concomitant]
  6. TOPAMAX [Concomitant]

REACTIONS (4)
  - Drug abuse [Recovered/Resolved]
  - Long QT syndrome [Recovered/Resolved]
  - Sopor [Recovered/Resolved]
  - Blood prolactin increased [Unknown]
